FAERS Safety Report 12968334 (Version 3)
Quarter: 2016Q4

REPORT INFORMATION
  Report Type: Spontaneous
  Country: DE (occurrence: DE)
  Receive Date: 20161123
  Receipt Date: 20161221
  Transmission Date: 20170207
  Serious: Yes (Life-Threatening, Other)
  Sender: FDA-Public Use
  Company Number: DE-GLAXOSMITHKLINE-DE2016GSK170019

PATIENT
  Sex: Male

DRUGS (4)
  1. DUODART [Suspect]
     Active Substance: DUTASTERIDE\TAMSULOSIN
     Indication: PRODUCT USED FOR UNKNOWN INDICATION
     Dosage: 0.9 MG, QD
     Route: 048
     Dates: start: 2016
  2. PROSTA URGENIN UNO [Concomitant]
     Indication: PRODUCT USED FOR UNKNOWN INDICATION
     Dosage: UNK
     Route: 048
  3. PRETERAX N [Concomitant]
     Indication: PRODUCT USED FOR UNKNOWN INDICATION
     Dosage: 3.125 MG, UNK, 2.5 MG/0.625 MG
     Route: 048
  4. SIMVA BASICS [Concomitant]
     Indication: PRODUCT USED FOR UNKNOWN INDICATION
     Dosage: 60 MG, UNK
     Route: 048

REACTIONS (4)
  - Product quality issue [Recovered/Resolved]
  - Choking [Recovered/Resolved]
  - Suffocation feeling [Recovered/Resolved]
  - Foreign body [Unknown]

NARRATIVE: CASE EVENT DATE: 2016
